FAERS Safety Report 6082735-0 (Version None)
Quarter: 2009Q1

REPORT INFORMATION
  Report Type: 
  Country: None (occurrence: None)
  Receive Date: 20090218
  Receipt Date: 20090126
  Transmission Date: 20090719
  Serious: Yes (Other)
  Sender: FDA-Public Use
  Company Number: US-PFIZER INC-2008151954

PATIENT
  Age: 34 Year
  Sex: Male

DRUGS (1)
  1. LYRICA [Suspect]
     Dosage: 100 MG, 2X/DAY

REACTIONS (1)
  - HYPERTENSION [None]
